FAERS Safety Report 12339835 (Version 2)
Quarter: 2016Q2

REPORT INFORMATION
  Report Type: Report from Study
  Country: DE (occurrence: DE)
  Receive Date: 20160506
  Receipt Date: 20160526
  Transmission Date: 20160815
  Serious: Yes (Hospitalization, Other)
  Sender: FDA-Public Use
  Company Number: DE-ROCHE-1741953

PATIENT
  Age: 60 Year
  Sex: Female
  Weight: 82 kg

DRUGS (10)
  1. NEBILET [Concomitant]
     Active Substance: NEBIVOLOL
     Route: 065
  2. LAFAMME [Concomitant]
     Route: 065
  3. RIBAVIRIN. [Suspect]
     Active Substance: RIBAVIRIN
     Indication: CHRONIC HEPATITIS C
     Route: 048
     Dates: start: 20150630
  4. FORAIR (GERMANY) [Concomitant]
  5. ALVESCO [Concomitant]
     Active Substance: CICLESONIDE
     Route: 065
  6. UNACID PD [Concomitant]
     Active Substance: SULTAMICILLIN TOSYLATE
     Dosage: AS REQUIRED
     Route: 065
  7. BUDIAIR [Concomitant]
     Route: 065
  8. RIBAVIRIN. [Suspect]
     Active Substance: RIBAVIRIN
     Route: 048
     Dates: end: 20150924
  9. SOFOSBUVIR [Suspect]
     Active Substance: SOFOSBUVIR
     Indication: CHRONIC HEPATITIS C
     Route: 048
     Dates: start: 20150630, end: 20150924
  10. PANTOZOL [Concomitant]
     Active Substance: PANTOPRAZOLE SODIUM
     Dosage: AS REQUIRED
     Route: 065

REACTIONS (10)
  - Gait disturbance [Unknown]
  - Dizziness [Unknown]
  - Urinary tract infection [Recovered/Resolved]
  - Gastrooesophageal reflux disease [Unknown]
  - Insomnia [Unknown]
  - Syncope [Unknown]
  - Haemoglobin decreased [Recovered/Resolved]
  - Migraine with aura [Recovered/Resolved]
  - Fall [Unknown]
  - Pneumonia [Recovered/Resolved]

NARRATIVE: CASE EVENT DATE: 201507
